FAERS Safety Report 9135453 (Version 1)
Quarter: 2013Q1

REPORT INFORMATION
  Report Type: Spontaneous
  Country: US (occurrence: US)
  Receive Date: 20130304
  Receipt Date: 20130304
  Transmission Date: 20140127
  Serious: No
  Sender: FDA-Public Use
  Company Number: US-ENDO PHARMACEUTICALS INC.-ENDC20120006

PATIENT
  Sex: Female
  Weight: 83.99 kg

DRUGS (4)
  1. ENDOCET 10MG/325MG [Suspect]
     Indication: NECK PAIN
     Dosage: 40/1300 MG
     Route: 048
     Dates: start: 2011
  2. ENDOCET 10MG/325MG [Suspect]
     Indication: INTERVERTEBRAL DISC PROTRUSION
  3. ENDOCET 10MG/325MG [Suspect]
     Indication: SCIATICA
  4. ENDOCET 10MG/325MG [Suspect]
     Indication: FIBROMYALGIA

REACTIONS (4)
  - Pain in extremity [Unknown]
  - Drug ineffective [Unknown]
  - Abdominal pain upper [Unknown]
  - Diarrhoea [Unknown]
